FAERS Safety Report 7221754-5 (Version None)
Quarter: 2010Q4

REPORT INFORMATION
  Report Type: 
  Country: None (occurrence: None)
  Receive Date: 20101230
  Receipt Date: 20101215
  Transmission Date: 20110411
  Serious: Yes (Other)
  Sender: FDA-Public Use
  Company Number: AUR-APL-2010-03147

PATIENT
  Age: 70 Year
  Sex: Male

DRUGS (2)
  1. SIMVASTATIN [Suspect]
     Dosage: 20-40MG - DAILY
     Dates: start: 20070101
  2. ASPIRIN [Concomitant]

REACTIONS (10)
  - AUTOIMMUNE DISORDER [None]
  - COAGULOPATHY [None]
  - DERMATITIS CONTACT [None]
  - DRUG ERUPTION [None]
  - HAIR DISORDER [None]
  - HYPERGAMMAGLOBULINAEMIA [None]
  - HYPERSENSITIVITY [None]
  - PALPABLE PURPURA [None]
  - RHEUMATOID FACTOR INCREASED [None]
  - VASCULITIS [None]
